FAERS Safety Report 7562365-1 (Version None)
Quarter: 2011Q2

REPORT INFORMATION
  Report Type: 
  Country: None (occurrence: None)
  Receive Date: 20110620
  Receipt Date: 20110620
  Transmission Date: 20111010
  Serious: No
  Sender: FDA-Public Use
  Company Number: None

PATIENT
  Age: 59 Year
  Sex: Male
  Weight: 99 kg

DRUGS (1)
  1. ROSUVASTATIN [Suspect]
     Dosage: 10MG HS PO
     Route: 048
     Dates: start: 20110209, end: 20110421

REACTIONS (1)
  - MYALGIA [None]
